FAERS Safety Report 6180816-4 (Version None)
Quarter: 2009Q2

REPORT INFORMATION
  Report Type: 
  Country: None (occurrence: None)
  Receive Date: 20090504
  Receipt Date: 20090420
  Transmission Date: 20091009
  Serious: Yes (Other)
  Sender: FDA-Public Use
  Company Number: SPI200900136

PATIENT
  Sex: Female

DRUGS (1)
  1. AMITIZA [Suspect]

REACTIONS (1)
  - CONVULSION [None]
